FAERS Safety Report 22270392 (Version 7)
Quarter: 2024Q1

REPORT INFORMATION
  Report Type: Spontaneous
  Country: US (occurrence: US)
  Receive Date: 20230501
  Receipt Date: 20240206
  Transmission Date: 20240410
  Serious: No
  Sender: FDA-Public Use
  Company Number: US-PFIZER INC-PV202300074948

PATIENT
  Age: 77 Year
  Sex: Male

DRUGS (2)
  1. BRAFTOVI [Suspect]
     Active Substance: ENCORAFENIB
     Dosage: TAKE 450 MG (6 CAPSULES) BY MOUTH DAILY
     Route: 048
  2. MEKTOVI [Suspect]
     Active Substance: BINIMETINIB
     Dosage: TAKE 45 MG (3 TABLETS) BY MOUTH EVERY 12 HOURS
     Route: 048

REACTIONS (3)
  - Pain [Unknown]
  - Aphasia [Unknown]
  - Disturbance in attention [Unknown]
